FAERS Safety Report 12227100 (Version 1)
Quarter: 2016Q1

REPORT INFORMATION
  Report Type: Spontaneous
  Country: GB (occurrence: GB)
  Receive Date: 20160331
  Receipt Date: 20160331
  Transmission Date: 20160526
  Serious: Yes (Life-Threatening, Other)
  Sender: FDA-Public Use
  Company Number: GB-TEVA-646909ACC

PATIENT
  Age: 57 Year
  Sex: Female

DRUGS (5)
  1. DOXAZOSIN [Concomitant]
     Active Substance: DOXAZOSIN\DOXAZOSIN MESYLATE
  2. PREDNISOLONE. [Concomitant]
     Active Substance: PREDNISOLONE
  3. ENALAPRIL [Concomitant]
     Active Substance: ENALAPRIL
  4. CLARITHROMYCIN. [Suspect]
     Active Substance: CLARITHROMYCIN
     Indication: INFECTION
     Dosage: 2 DOSAGE FORMS DAILY;
     Route: 048
     Dates: start: 20160303, end: 20160310
  5. XARELTO [Concomitant]
     Active Substance: RIVAROXABAN

REACTIONS (2)
  - Hypoglycaemia [Recovered/Resolved]
  - Impaired quality of life [Unknown]

NARRATIVE: CASE EVENT DATE: 20160304
